FAERS Safety Report 7236250-9 (Version None)
Quarter: 2011Q1

REPORT INFORMATION
  Report Type: 
  Country: None (occurrence: None)
  Receive Date: 20110120
  Receipt Date: 20110110
  Transmission Date: 20110831
  Serious: Yes (Hospitalization, Disabling, Other)
  Sender: FDA-Public Use
  Company Number: US-MERCK-0704USA05512

PATIENT
  Age: 73 Year
  Sex: Female
  Weight: 62 kg

DRUGS (12)
  1. FOSAMAX [Suspect]
     Indication: OSTEOPENIA
     Route: 048
     Dates: start: 20010420, end: 20010629
  2. FOSAMAX [Suspect]
     Indication: OSTEOPOROSIS
     Route: 048
     Dates: start: 20010420, end: 20010629
  3. FOSAMAX [Suspect]
     Route: 048
     Dates: start: 20010630, end: 20010911
  4. FOSAMAX [Suspect]
     Route: 048
     Dates: start: 19981117, end: 20010419
  5. FOSAMAX [Suspect]
     Route: 048
     Dates: start: 20010912, end: 20070313
  6. PROVERA [Concomitant]
     Route: 065
     Dates: start: 19981117, end: 20010420
  7. PREDNISONE [Suspect]
     Route: 065
     Dates: start: 20070101
  8. PREMARIN [Concomitant]
     Route: 065
     Dates: start: 19981117, end: 20010420
  9. FOSAMAX [Suspect]
     Route: 048
     Dates: start: 20010912, end: 20070313
  10. FOSAMAX [Suspect]
     Route: 048
     Dates: start: 19981117, end: 20010419
  11. ACTONEL [Suspect]
     Indication: OSTEOPENIA
     Route: 065
     Dates: start: 20060717, end: 20070418
  12. FOSAMAX [Suspect]
     Route: 048
     Dates: start: 20010630, end: 20010911

REACTIONS (113)
  - ATRIAL FIBRILLATION [None]
  - CARDIAC FAILURE CONGESTIVE [None]
  - ASTHMA [None]
  - PAIN [None]
  - ANAEMIA POSTOPERATIVE [None]
  - FALL [None]
  - INFECTION [None]
  - HYPOTHYROIDISM [None]
  - HYPERTENSION [None]
  - RIB FRACTURE [None]
  - UPPER-AIRWAY COUGH SYNDROME [None]
  - SYNOVITIS [None]
  - URETHRAL STENOSIS [None]
  - MYOSITIS [None]
  - MITRAL VALVE INCOMPETENCE [None]
  - DEPRESSION [None]
  - PERIPHERAL COLDNESS [None]
  - BENIGN NEOPLASM OF SKIN [None]
  - ANXIETY DISORDER [None]
  - DECREASED APPETITE [None]
  - PULMONARY FIBROSIS [None]
  - BENIGN NEOPLASM OF THYROID GLAND [None]
  - CATARACT [None]
  - FRACTURED COCCYX [None]
  - STRESS ECHOCARDIOGRAM ABNORMAL [None]
  - VERTIGO [None]
  - SACRALISATION [None]
  - MYALGIA [None]
  - LARYNGITIS [None]
  - JOINT INJURY [None]
  - ALOPECIA [None]
  - HAEMOPTYSIS [None]
  - DRUG INTOLERANCE [None]
  - DIVERTICULUM [None]
  - CHEST PAIN [None]
  - CHOLELITHIASIS [None]
  - BREAST DISORDER [None]
  - FACE INJURY [None]
  - PAIN IN EXTREMITY [None]
  - SYNCOPE [None]
  - URTICARIA THERMAL [None]
  - SCOLIOSIS [None]
  - ROTATOR CUFF SYNDROME [None]
  - CONTUSION [None]
  - FATIGUE [None]
  - OSTEONECROSIS OF JAW [None]
  - TRICUSPID VALVE INCOMPETENCE [None]
  - PALPITATIONS [None]
  - ADVERSE EVENT [None]
  - HEAD INJURY [None]
  - RASH [None]
  - PAIN IN JAW [None]
  - TENDERNESS [None]
  - RIGHT ATRIAL DILATATION [None]
  - MITRAL VALVE PROLAPSE [None]
  - BACK PAIN [None]
  - GINGIVAL INFECTION [None]
  - ATRIAL FLUTTER [None]
  - LUNG INFILTRATION [None]
  - LEFT VENTRICULAR DYSFUNCTION [None]
  - ARTHROPATHY [None]
  - MEMORY IMPAIRMENT [None]
  - EDENTULOUS [None]
  - HEART RATE INCREASED [None]
  - RADIUS FRACTURE [None]
  - NODULE [None]
  - THYROID DISORDER [None]
  - INSOMNIA [None]
  - VULVOVAGINAL DRYNESS [None]
  - THYROID NEOPLASM [None]
  - VENTRICULAR HYPOKINESIA [None]
  - INTERVERTEBRAL DISC DISORDER [None]
  - GOITRE [None]
  - GASTRIC DISORDER [None]
  - BLOOD ALKALINE PHOSPHATASE INCREASED [None]
  - NECK PAIN [None]
  - MALAISE [None]
  - HYPERTHYROIDISM [None]
  - DYSPHONIA [None]
  - STRESS [None]
  - SKIN DISORDER [None]
  - WOUND [None]
  - ULNA FRACTURE [None]
  - ORAL TORUS [None]
  - LOSS OF CONSCIOUSNESS [None]
  - GINGIVAL BLEEDING [None]
  - DEVICE BREAKAGE [None]
  - CARDIAC VALVE DISEASE [None]
  - OSTEONECROSIS [None]
  - ARTHRALGIA [None]
  - EXOSTOSIS [None]
  - BLOOD PRESSURE DECREASED [None]
  - DRY SKIN [None]
  - RHEUMATOID ARTHRITIS [None]
  - SINUS DISORDER [None]
  - TOOTHACHE [None]
  - MOOD ALTERED [None]
  - MENOPAUSE [None]
  - LIVER FUNCTION TEST ABNORMAL [None]
  - PLEURAL EFFUSION [None]
  - OSTEOARTHRITIS [None]
  - ANAL HAEMORRHAGE [None]
  - ATYPICAL MYCOBACTERIAL INFECTION [None]
  - BRONCHIECTASIS [None]
  - ASTHENIA [None]
  - MUSCULOSKELETAL DISCOMFORT [None]
  - FOOT DEFORMITY [None]
  - ATROPHIC VULVOVAGINITIS [None]
  - UPPER RESPIRATORY TRACT INFECTION [None]
  - THYROID MASS [None]
  - MUSCULOSKELETAL PAIN [None]
  - ORAL DISORDER [None]
  - JOINT DISLOCATION REDUCTION [None]
